FAERS Safety Report 4488428-5 (Version None)
Quarter: 2004Q4

REPORT INFORMATION
  Report Type: 
  Country: None (occurrence: None)
  Receive Date: 20041026
  Receipt Date: 20041013
  Transmission Date: 20050328
  Serious: Yes (Disabling)
  Sender: FDA-Public Use
  Company Number: 04H-163-0277691-00

PATIENT
  Age: 76 Year
  Sex: Male

DRUGS (2)
  1. EPINEPHRINE [Suspect]
     Indication: VASOCONSTRICTION
     Dosage: OPHTHALMIC
     Route: 047
     Dates: start: 20040929, end: 20040929
  2. BSS [Concomitant]

REACTIONS (3)
  - ENDOPHTHALMITIS [None]
  - POST PROCEDURAL COMPLICATION [None]
  - STAPHYLOCOCCAL INFECTION [None]
